FAERS Safety Report 20641375 (Version 1)
Quarter: 2022Q1

REPORT INFORMATION
  Report Type: Spontaneous
  Country: US (occurrence: US)
  Receive Date: 20220328
  Receipt Date: 20220328
  Transmission Date: 20220423
  Serious: No
  Sender: FDA-Public Use
  Company Number: US-JNJFOC-20220340352

PATIENT

DRUGS (3)
  1. INVEGA SUSTENNA [Suspect]
     Active Substance: PALIPERIDONE PALMITATE
     Indication: Schizophrenia
     Route: 030
  2. INVEGA SUSTENNA [Suspect]
     Active Substance: PALIPERIDONE PALMITATE
  3. INVEGA SUSTENNA [Suspect]
     Active Substance: PALIPERIDONE PALMITATE

REACTIONS (13)
  - Emotional distress [Unknown]
  - Feeling abnormal [Unknown]
  - Thought withdrawal [Unknown]
  - Emotional poverty [Unknown]
  - Akathisia [Unknown]
  - Anxiety [Unknown]
  - Memory impairment [Unknown]
  - Apathy [Unknown]
  - Hypoaesthesia [Unknown]
  - Thinking abnormal [Unknown]
  - Depression [Unknown]
  - Loss of libido [Unknown]
  - Weight increased [Unknown]
